FAERS Safety Report 21563121 (Version 1)
Quarter: 2022Q4

REPORT INFORMATION
  Report Type: Spontaneous
  Country: US (occurrence: None)
  Receive Date: 20221107
  Receipt Date: 20221107
  Transmission Date: 20230113
  Serious: Yes (Other)
  Sender: FDA-Public Use
  Company Number: None

PATIENT
  Sex: Female

DRUGS (1)
  1. ENBREL [Suspect]
     Active Substance: ETANERCEPT
     Dosage: 50MG WEEKLY OTHER SUBCUTNEOUS?
     Route: 058
     Dates: start: 202011

REACTIONS (4)
  - Myocardial infarction [None]
  - Haemorrhage [None]
  - Contusion [None]
  - Rectal haemorrhage [None]
